FAERS Safety Report 9879779 (Version 3)
Quarter: 2014Q3

REPORT INFORMATION
  Report Type: Spontaneous
  Country: US (occurrence: US)
  Receive Date: 20140206
  Receipt Date: 20140715
  Transmission Date: 20150326
  Serious: Yes (Hospitalization, Other)
  Sender: FDA-Public Use
  Company Number: US-009507513-1402USA001273

PATIENT
  Sex: Female

DRUGS (1)
  1. NUVARING [Suspect]
     Active Substance: ETHINYL ESTRADIOL\ETONOGESTREL
     Indication: CONTRACEPTION
     Dosage: UNK
     Route: 067
     Dates: start: 2010, end: 201006

REACTIONS (7)
  - Vascular graft occlusion [Unknown]
  - Thrombectomy [Unknown]
  - Depression [Unknown]
  - Fatigue [Recovering/Resolving]
  - Peripheral artery bypass [Unknown]
  - Injury [Unknown]
  - Vascular graft occlusion [Unknown]

NARRATIVE: CASE EVENT DATE: 201002
